FAERS Safety Report 9596891 (Version 2)
Quarter: 2014Q1

REPORT INFORMATION
  Report Type: Spontaneous
  Country: GB (occurrence: GB)
  Receive Date: 20131004
  Receipt Date: 20140129
  Transmission Date: 20141002
  Serious: Yes (Other)
  Sender: FDA-Public Use
  Company Number: ALCN2013GB004922

PATIENT
  Age: 62 Year
  Sex: Female

DRUGS (2)
  1. AZOPT [Suspect]
     Dosage: 1 GTT, QD
     Route: 047
  2. THYROXINE [Concomitant]
     Indication: HYPOTHYROIDISM

REACTIONS (9)
  - Depressed level of consciousness [Unknown]
  - Metamorphopsia [Unknown]
  - Migraine [Unknown]
  - Visual impairment [Unknown]
  - Diplopia [Unknown]
  - Headache [Unknown]
  - Vision blurred [Not Recovered/Not Resolved]
  - Eye pain [Unknown]
  - Lacrimation increased [Unknown]
